FAERS Safety Report 5316527-4 (Version None)
Quarter: 2007Q2

REPORT INFORMATION
  Report Type: 
  Country: None (occurrence: None)
  Receive Date: 20070430
  Receipt Date: 20070418
  Transmission Date: 20071010
  Serious: Yes (Death, Life-Threatening)
  Sender: FDA-Public Use
  Company Number: 2007-01089

PATIENT
  Age: 78 Year
  Sex: Female

DRUGS (3)
  1. VELCADE [Suspect]
     Indication: MULTIPLE MYELOMA
     Dosage: 2.30 MG, INTRAVENOUS
     Route: 042
     Dates: start: 20070323, end: 20070406
  2. DEXAMETHASONE [Suspect]
     Indication: MULTIPLE MYELOMA
     Dosage: ORAL
     Route: 048
     Dates: start: 20070323, end: 20070402
  3. ROMIDEPSIN (DEPSIPEPTIDE) POWDER (EXCEPT [DPO]) [Suspect]
     Indication: MULTIPLE MYELOMA
     Dosage: 21.00 MG, INTRAVENOUS
     Route: 042
     Dates: start: 20070323, end: 20070406

REACTIONS (4)
  - CEREBRAL HAEMORRHAGE [None]
  - DISEASE PROGRESSION [None]
  - HYPERVISCOSITY SYNDROME [None]
  - THROMBOCYTOPENIA [None]
